FAERS Safety Report 20693456 (Version 1)
Quarter: 2022Q2

REPORT INFORMATION
  Report Type: Report from Study
  Country: CA (occurrence: CA)
  Receive Date: 20220410
  Receipt Date: 20220410
  Transmission Date: 20220721
  Serious: Yes (Death, Other)
  Sender: FDA-Public Use
  Company Number: CA-BRISTOL-MYERS SQUIBB COMPANY-2022-016284

PATIENT
  Age: 82 Year
  Sex: Female

DRUGS (10)
  1. ORENCIA [Suspect]
     Active Substance: ABATACEPT
     Indication: Rheumatoid arthritis
     Dosage: WEEKLY; MILLIGRAM
     Dates: start: 20211107
  2. PROLIA [Concomitant]
     Active Substance: DENOSUMAB
  3. PREDNISONE [Concomitant]
     Active Substance: PREDNISONE
  4. RISEDRONATE SODIUM [Concomitant]
     Active Substance: RISEDRONATE SODIUM
  5. DULOXETINE [Concomitant]
     Active Substance: DULOXETINE
  6. PANTOPRAZOLE [Concomitant]
     Active Substance: PANTOPRAZOLE
  7. METFORMIN [Concomitant]
     Active Substance: METFORMIN HYDROCHLORIDE
  8. VITAMIN D NOS [Concomitant]
     Active Substance: VITAMIN D NOS
  9. SYNTHROID [Concomitant]
     Active Substance: LEVOTHYROXINE SODIUM
  10. LINAGLIPTIN [Concomitant]
     Active Substance: LINAGLIPTIN

REACTIONS (1)
  - Death [Fatal]

NARRATIVE: CASE EVENT DATE: 20220101
